FAERS Safety Report 14012854 (Version 1)
Quarter: 2017Q3

REPORT INFORMATION
  Report Type: Spontaneous
  Country: None (occurrence: US)
  Receive Date: 20170926
  Receipt Date: 20170926
  Transmission Date: 20171128
  Serious: Yes (Other)
  Sender: FDA-Public Use
  Company Number: US-TEIKOKU PHARMA USA-TPU2017-00590

PATIENT
  Weight: 104.42 kg

DRUGS (13)
  1. HYDROCODONE [Concomitant]
     Active Substance: HYDROCODONE
     Indication: BACK PAIN
     Dosage: 10-325MG
     Route: 048
  2. GABAPENTIN. [Concomitant]
     Active Substance: GABAPENTIN
     Indication: PAIN
     Route: 048
  3. ETODOLAC. [Concomitant]
     Active Substance: ETODOLAC
     Indication: PAIN
     Route: 048
  4. ZOLOFT [Concomitant]
     Active Substance: SERTRALINE HYDROCHLORIDE
     Indication: DEPRESSION
     Dosage: FOR A LONG TIME
     Route: 048
  5. PANTOPRAZOLE 500 DR [Concomitant]
     Indication: GASTROOESOPHAGEAL REFLUX DISEASE
     Route: 048
  6. CLONAZEPAM. [Concomitant]
     Active Substance: CLONAZEPAM
     Indication: ANXIETY
     Route: 048
  7. LIDOCAINE PATCH [Suspect]
     Active Substance: LIDOCAINE
     Indication: BACK PAIN
     Dosage: ON FOR 12 HOURS AND OFF FOR 12 HOURS
  8. FLECTOR [Concomitant]
     Active Substance: DICLOFENAC EPOLAMINE
     Indication: BACK PAIN
  9. BUTALBITAL-ACT-CAF [Concomitant]
     Indication: MIGRAINE
     Dosage: 50-325-40MG BY MOUTH AS NEEDED EVERY 6 HOURS
     Route: 048
  10. TRIBENZOR [Concomitant]
     Active Substance: AMLODIPINE BESYLATE\HYDROCHLOROTHIAZIDE\OLMESARTAN MEDOXOMIL
     Indication: BLOOD PRESSURE MEASUREMENT
     Dosage: 40-10-25MG
     Route: 048
  11. COENZYME Q10 [Concomitant]
     Active Substance: UBIDECARENONE
  12. LIDODERM [Suspect]
     Active Substance: LIDOCAINE
     Indication: PRODUCT USED FOR UNKNOWN INDICATION
  13. SIMVASTATIN. [Concomitant]
     Active Substance: SIMVASTATIN
     Indication: BLOOD CHOLESTEROL
     Route: 048

REACTIONS (12)
  - Headache [Not Recovered/Not Resolved]
  - Body height decreased [Not Recovered/Not Resolved]
  - Spinal operation [Unknown]
  - Arthritis [Not Recovered/Not Resolved]
  - Spinal fusion surgery [Unknown]
  - Application site vesicles [Unknown]
  - General physical health deterioration [Not Recovered/Not Resolved]
  - Spinal deformity [Not Recovered/Not Resolved]
  - Macular degeneration [Not Recovered/Not Resolved]
  - Knee operation [Unknown]
  - Intervertebral disc degeneration [Not Recovered/Not Resolved]
  - Pain [Unknown]
